FAERS Safety Report 4448405-7 (Version None)
Quarter: 2004Q3

REPORT INFORMATION
  Report Type: 
  Country: None (occurrence: None)
  Receive Date: 20040730
  Receipt Date: 20040310
  Transmission Date: 20050211
  Serious: Yes (Other)
  Sender: FDA-Public Use
  Company Number: 2004-03-1671

PATIENT
  Age: 38 Year
  Sex: Female
  Weight: 64.4108 kg

DRUGS (2)
  1. INTRON A [Suspect]
     Indication: MALIGNANT MELANOMA
     Dosage: SEE IMAGE
     Dates: start: 20030428
  2. LEXAPRO (ESCITALOPRAM) TABLETS [Concomitant]

REACTIONS (2)
  - BLOOD THYROID STIMULATING HORMONE ABNORMAL [None]
  - THYROXINE ABNORMAL [None]
